FAERS Safety Report 7250599-5 (Version None)
Quarter: 2011Q1

REPORT INFORMATION
  Report Type: 
  Country: None (occurrence: None)
  Receive Date: 20110128
  Receipt Date: 20101231
  Transmission Date: 20110831
  Serious: Yes (Other)
  Sender: FDA-Public Use
  Company Number: PHHY2010GB90037

PATIENT
  Age: 75 Year
  Sex: Female

DRUGS (8)
  1. GENTAMICIN [Suspect]
     Indication: KERATITIS FUNGAL
     Dosage: 1.5 %, UNK
  2. OFLOXACIN [Suspect]
     Indication: KERATITIS FUNGAL
  3. CEFUROXIME [Suspect]
     Indication: KERATITIS FUNGAL
     Dosage: 5 %, UNK
  4. FLUCONAZOLE [Suspect]
     Indication: KERATITIS FUNGAL
     Dosage: 2 %, UNK
     Route: 061
  5. DEXAMETHASONE [Suspect]
     Indication: PROPHYLAXIS
     Dosage: 1 %, 4 DOSAGE PER DAY
     Route: 061
  6. AMPHOTERICIN B [Suspect]
     Indication: PROPHYLAXIS
  7. ITRACONAZOLE [Suspect]
     Indication: KERATITIS FUNGAL
     Dosage: 100 MG, BID
     Route: 048
  8. VORICONAZOLE [Suspect]
     Indication: KERATITIS FUNGAL
     Dosage: 400MG LOADING FOLLOWED BY 200MG TWICE DAILY
     Route: 048

REACTIONS (8)
  - CORNEAL OEDEMA [None]
  - EYE ABSCESS [None]
  - DRUG RESISTANCE [None]
  - TRANSPLANT REJECTION [None]
  - EYE PRURITUS [None]
  - KERATITIS FUNGAL [None]
  - DACRYOCANALICULITIS [None]
  - KERATITIS [None]
